FAERS Safety Report 8398143-3 (Version None)
Quarter: 2012Q2

REPORT INFORMATION
  Report Type: 
  Country: None (occurrence: None)
  Receive Date: 20120531
  Receipt Date: 20120525
  Transmission Date: 20120825
  Serious: Yes (Hospitalization)
  Sender: FDA-Public Use
  Company Number: PHHY2012GB044941

PATIENT
  Age: 56 Year
  Sex: Male
  Weight: 101.6 kg

DRUGS (7)
  1. CYANOCOBALAMIN [Concomitant]
     Dosage: 50 UG, TID
  2. OMEPRAZOLE [Concomitant]
     Dosage: 20 MG, QD
  3. ALBUTEROL [Concomitant]
     Dosage: 2 DF, PRN
  4. FOLIC ACID [Concomitant]
     Dosage: 5 MG, QD
  5. SIMVASTATIN [Suspect]
     Indication: HYPERCHOLESTEROLAEMIA
     Dosage: 40 MG, UNK
     Route: 048
     Dates: start: 20120301, end: 20120511
  6. PREDNISOLONE [Suspect]
     Indication: CHRONIC OBSTRUCTIVE PULMONARY DISEASE
     Dosage: 30 MG, UNK
     Route: 048
     Dates: start: 20120509, end: 20120511
  7. AMOXICILLIN [Concomitant]
     Indication: LOWER RESPIRATORY TRACT INFECTION BACTERIAL
     Dosage: 500 MG, TID

REACTIONS (7)
  - RENAL FAILURE ACUTE [None]
  - RHABDOMYOLYSIS [None]
  - HYPERKALAEMIA [None]
  - TACHYCARDIA [None]
  - BLOOD PRESSURE INCREASED [None]
  - ANURIA [None]
  - PAIN [None]
